FAERS Safety Report 6713239-7 (Version None)
Quarter: 2010Q2

REPORT INFORMATION
  Report Type: 
  Country: None (occurrence: None)
  Receive Date: 20100505
  Receipt Date: 20100505
  Transmission Date: 20101027
  Serious: Yes (Life-Threatening, Hospitalization)
  Sender: FDA-Public Use
  Company Number: None

PATIENT
  Sex: Male
  Weight: 18.1439 kg

DRUGS (2)
  1. CHILDREN'S MOTRIN [Suspect]
     Indication: PAIN IN EXTREMITY
     Dosage: 7.5 ML ONCE PO
     Route: 048
     Dates: start: 20100325, end: 20100325
  2. CHILDREN'S MOTRIN [Suspect]
     Indication: UPPER LIMB FRACTURE
     Dosage: 7.5 ML ONCE PO
     Route: 048
     Dates: start: 20100325, end: 20100325

REACTIONS (7)
  - CHEST PAIN [None]
  - CRYING [None]
  - DRUG HYPERSENSITIVITY [None]
  - DYSPNOEA [None]
  - EYE SWELLING [None]
  - PRODUCT QUALITY ISSUE [None]
  - WHEEZING [None]
